FAERS Safety Report 8450422-7 (Version None)
Quarter: 2012Q2

REPORT INFORMATION
  Report Type: 
  Country: None (occurrence: None)
  Receive Date: 20120620
  Receipt Date: 20120614
  Transmission Date: 20120825
  Serious: Yes (Hospitalization)
  Sender: FDA-Public Use
  Company Number: PL-AMGEN-POLCT2012036975

PATIENT
  Age: 79 Year
  Sex: Female
  Weight: 47 kg

DRUGS (18)
  1. MAGNESIUM SULFATE [Concomitant]
     Indication: HYPOMAGNESAEMIA
     Dosage: UNK
     Route: 042
     Dates: start: 20111201
  2. NO-SPA [Concomitant]
     Indication: ABDOMINAL PAIN
     Dosage: UNK
     Route: 048
     Dates: start: 20120308
  3. DUPHALAC [Concomitant]
     Indication: CONSTIPATION
     Dosage: UNK
     Route: 048
     Dates: start: 20120406
  4. POLPRAZOL [Concomitant]
     Indication: DYSPEPSIA
     Dosage: UNK
     Route: 048
     Dates: start: 20111007
  5. FURAGINUM [Concomitant]
     Indication: URINARY TRACT INFECTION
     Dosage: UNK
     Route: 048
     Dates: start: 20120118
  6. PROTIFAR [Concomitant]
     Indication: HYPOALBUMINAEMIA
     Dosage: UNK
     Route: 048
     Dates: start: 20111230
  7. AMLODIPINE [Concomitant]
     Indication: HYPERTENSION
     Dosage: UNK
     Route: 048
     Dates: start: 19900615
  8. TRAMADOL HCL [Concomitant]
     Indication: ABDOMINAL PAIN
     Dosage: UNK
     Route: 048
     Dates: start: 20120322
  9. ZINC SULFATE [Concomitant]
     Indication: SKIN TOXICITY
     Dosage: UNK
     Route: 061
     Dates: start: 20110705
  10. MEGACE [Concomitant]
     Indication: DECREASED APPETITE
     Dosage: UNK
     Route: 048
     Dates: start: 20120531
  11. PANITUMUMAB [Suspect]
     Indication: COLORECTAL CANCER
     Dosage: 258 MG, UNK
     Dates: start: 20110616
  12. POTASSIUM ACETATE [Concomitant]
     Indication: HYPOKALAEMIA
     Dosage: UNK
     Route: 048
     Dates: start: 20111230
  13. KETOPROFEN [Concomitant]
     Indication: ABDOMINAL PAIN
     Dosage: UNK
     Route: 048
     Dates: start: 20120112, end: 20120322
  14. SIMVASTATIN [Concomitant]
     Indication: HYPERCHOLESTEROLAEMIA
     Dosage: UNK
     Route: 048
     Dates: start: 20110520
  15. MAGNESIUM [Concomitant]
     Indication: HYPOMAGNESAEMIA
     Dosage: UNK
     Route: 048
     Dates: start: 20110811
  16. HYDROCORTISONE [Concomitant]
     Indication: SKIN TOXICITY
     Dosage: UNK
     Route: 061
     Dates: start: 20111117
  17. TRIMETAZIDINE [Concomitant]
     Dosage: UNK
     Route: 048
     Dates: start: 20040615
  18. METIZOL [Concomitant]
     Indication: HYPERTHYROIDISM
     Dosage: UNK
     Route: 048
     Dates: start: 20120229, end: 20120509

REACTIONS (1)
  - INTESTINAL OBSTRUCTION [None]
